FAERS Safety Report 20357692 (Version 3)
Quarter: 2022Q1

REPORT INFORMATION
  Report Type: Report from Study
  Country: DE (occurrence: DE)
  Receive Date: 20220120
  Receipt Date: 20220224
  Transmission Date: 20220424
  Serious: Yes (Death, Hospitalization)
  Sender: FDA-Public Use
  Company Number: DE-BRISTOL-MYERS SQUIBB COMPANY-BMS-2021-120774

PATIENT
  Age: 77 Year
  Sex: Male

DRUGS (4)
  1. NIVOLUMAB [Suspect]
     Active Substance: NIVOLUMAB
     Indication: B-cell lymphoma
     Dosage: 240 MILLIGRAM
     Route: 042
     Dates: start: 20210701, end: 20210901
  2. OXALIPLATIN [Suspect]
     Active Substance: OXALIPLATIN
     Indication: B-cell lymphoma
     Dosage: 157.5 MILLIGRAM PER CYCLE
     Route: 042
     Dates: start: 20210702, end: 20211026
  3. GEMCITABINE HYDROCHLORIDE [Suspect]
     Active Substance: GEMCITABINE HYDROCHLORIDE
     Indication: B-cell lymphoma
     Dosage: 1575 MILLIGRAM PER CYCLE
     Route: 042
     Dates: start: 20210701, end: 20211026
  4. PEGFILGRASTIM [Suspect]
     Active Substance: PEGFILGRASTIM
     Indication: B-cell lymphoma
     Dosage: 6 MILLIGRAM PER CYCLE
     Route: 058
     Dates: start: 20210705, end: 20211028

REACTIONS (1)
  - Fall [Fatal]

NARRATIVE: CASE EVENT DATE: 20211109
